FAERS Safety Report 7091755-9 (Version None)
Quarter: 2010Q4

REPORT INFORMATION
  Report Type: 
  Country: None (occurrence: None)
  Receive Date: 20101109
  Receipt Date: 20101029
  Transmission Date: 20110411
  Serious: Yes (Hospitalization, Other)
  Sender: FDA-Public Use
  Company Number: US-MERCK-1011USA00027

PATIENT
  Age: 62 Year
  Sex: Female

DRUGS (4)
  1. FOSAMAX PLUS D [Suspect]
     Indication: OSTEOPOROSIS
     Route: 048
     Dates: start: 19970101
  2. DILANTIN [Concomitant]
     Route: 065
  3. PHENOBARBITAL [Concomitant]
     Route: 065
  4. LEXAPRO [Concomitant]
     Route: 065

REACTIONS (3)
  - BONE DENSITY DECREASED [None]
  - COMPLEX PARTIAL SEIZURES [None]
  - FALL [None]
